FAERS Safety Report 6867583-3 (Version None)
Quarter: 2010Q3

REPORT INFORMATION
  Report Type: 
  Country: None (occurrence: None)
  Receive Date: 20100722
  Receipt Date: 20091007
  Transmission Date: 20110219
  Serious: No
  Sender: FDA-Public Use
  Company Number: US-BAUSCH-2009BL000442

PATIENT
  Age: 20 Year
  Sex: Female
  Weight: 71 kg

DRUGS (2)
  1. OPCON-A [Suspect]
     Indication: EYE PRURITUS
     Route: 047
     Dates: start: 20090202, end: 20090202
  2. TYLENOL ^JOHNSON + JOHNSON^ [Concomitant]
     Indication: ENDOMETRIOSIS
     Route: 048
     Dates: start: 20000101

REACTIONS (5)
  - DRUG EXPOSURE DURING PREGNANCY [None]
  - EYE IRRITATION [None]
  - EYELID OEDEMA [None]
  - NORMAL NEWBORN [None]
  - THROAT IRRITATION [None]
